FAERS Safety Report 12862840 (Version 1)
Quarter: 2016Q4

REPORT INFORMATION
  Report Type: Spontaneous
  Country: GB (occurrence: IT)
  Receive Date: 20161019
  Receipt Date: 20161019
  Transmission Date: 20170207
  Serious: Yes (Other)
  Sender: FDA-Public Use
  Company Number: GB-JNJFOC-20161014043

PATIENT
  Sex: Male

DRUGS (1)
  1. SOFT MINT LISTERINE ANTISEPTIC [Suspect]
     Active Substance: EUCALYPTOL\MENTHOL\METHYL SALICYLATE\THYMOL
     Indication: DENTAL DISORDER PROPHYLAXIS
     Dosage: 1 -2 DAILY (SEVERAL WEEK AGO)
     Route: 048

REACTIONS (1)
  - Leukoplakia oral [Unknown]
